FAERS Safety Report 5498763-X (Version None)
Quarter: 2007Q4

REPORT INFORMATION
  Report Type: 
  Country: None (occurrence: None)
  Receive Date: 20071026
  Receipt Date: 20070717
  Transmission Date: 20080405
  Serious: Yes (Other)
  Sender: FDA-Public Use
  Company Number: A0664299A

PATIENT
  Age: 69 Year
  Sex: Female

DRUGS (7)
  1. ADVAIR DISKUS 100/50 [Suspect]
     Indication: ASTHMA
     Route: 055
     Dates: start: 20040101, end: 20060701
  2. PRILOSEC [Concomitant]
  3. VYTORIN [Concomitant]
  4. SINGULAIR [Concomitant]
  5. FLUTICASONE PROPIONATE [Concomitant]
  6. ALBUTEROL [Concomitant]
  7. TYLENOL (CAPLET) [Concomitant]

REACTIONS (3)
  - CATARACT [None]
  - OSTEOPOROSIS [None]
  - RESORPTION BONE INCREASED [None]
